FAERS Safety Report 6059779-8 (Version None)
Quarter: 2009Q1

REPORT INFORMATION
  Report Type: 
  Country: None (occurrence: None)
  Receive Date: 20090130
  Receipt Date: 20090120
  Transmission Date: 20090719
  Serious: Yes (Other)
  Sender: FDA-Public Use
  Company Number: GR-ROCHE-609464

PATIENT
  Age: 65 Year
  Sex: Female

DRUGS (3)
  1. BONIVA [Suspect]
     Indication: OSTEOPENIA
     Dosage: STRENGTH AND FORMULATION REPORTED : F.C. TABS 150 MG.
     Route: 048
     Dates: start: 20070101
  2. MIACALCIN [Concomitant]
     Indication: OSTEOPENIA
     Dosage: NAME REPORTED AS: CALCITONIN.
  3. FOSAMAX [Concomitant]
     Indication: OSTEOPENIA
     Dosage: NAME REPORTED AS: ALENDRONATE SODIUM.

REACTIONS (1)
  - MYOPIA [None]
